FAERS Safety Report 14035375 (Version 1)
Quarter: 2017Q4

REPORT INFORMATION
  Report Type: Spontaneous
  Country: US (occurrence: US)
  Receive Date: 20171003
  Receipt Date: 20171003
  Transmission Date: 20180321
  Serious: No
  Sender: FDA-Public Use
  Company Number: US-TAKEDA-2017TUS020019

PATIENT
  Age: 28 Year
  Sex: Male

DRUGS (1)
  1. ROZEREM [Suspect]
     Active Substance: RAMELTEON
     Indication: SLEEP DISORDER THERAPY
     Dosage: 16 MG, QD
     Route: 048
     Dates: start: 2010

REACTIONS (2)
  - Overdose [Unknown]
  - No adverse event [Unknown]
